FAERS Safety Report 5121889-7 (Version None)
Quarter: 2006Q4

REPORT INFORMATION
  Report Type: 
  Country: None (occurrence: None)
  Receive Date: 20061006
  Receipt Date: 20060926
  Transmission Date: 20070319
  Serious: Yes (Death)
  Sender: FDA-Public Use
  Company Number: US-GLAXOSMITHKLINE-A0622240A

PATIENT
  Sex: Male

DRUGS (1)
  1. GAVISCON [Suspect]

REACTIONS (3)
  - DRUG INEFFECTIVE [None]
  - PANCREATIC CARCINOMA [None]
  - STOMACH DISCOMFORT [None]
